FAERS Safety Report 16530460 (Version 3)
Quarter: 2019Q4

REPORT INFORMATION
  Report Type: Report from Study
  Country: FR (occurrence: FR)
  Receive Date: 20190704
  Receipt Date: 20191205
  Transmission Date: 20200122
  Serious: Yes (Other)
  Sender: FDA-Public Use
  Company Number: FR-ROCHE-2231739

PATIENT
  Age: 63 Year
  Sex: Male
  Weight: 79 kg

DRUGS (10)
  1. OBINUTUZUMAB. [Suspect]
     Active Substance: OBINUTUZUMAB
     Indication: MANTLE CELL LYMPHOMA
     Dosage: ON 01/OCT/2018, HE RECEIVED THE MOST RECENT DOSE OF OBINUTUZUMAB PRIOR TO THE ADVERSWE EVENT ONSET.
     Route: 065
     Dates: start: 20180319
  2. CALCIUM FOLINATE [Concomitant]
     Active Substance: LEUCOVORIN CALCIUM
  3. RACECADOTRIL [Concomitant]
     Active Substance: RACECADOTRIL
     Route: 065
     Dates: start: 20181105, end: 20181114
  4. DEXAMETHASONE. [Concomitant]
     Active Substance: DEXAMETHASONE
     Indication: LYMPHOMA
     Route: 065
     Dates: start: 20180319, end: 20180530
  5. CARBOPLATIN. [Concomitant]
     Active Substance: CARBOPLATIN
     Route: 065
     Dates: start: 20180319, end: 20180530
  6. BACTRIM [Concomitant]
     Active Substance: SULFAMETHOXAZOLE\TRIMETHOPRIM
     Indication: PROPHYLAXIS
     Route: 065
     Dates: start: 20180320, end: 20181207
  7. CALCIUM FOLINATE [Concomitant]
     Active Substance: LEUCOVORIN CALCIUM
     Route: 065
     Dates: start: 20180320, end: 20181207
  8. CYTARABINE. [Concomitant]
     Active Substance: CYTARABINE
     Indication: LYMPHOMA
     Route: 065
     Dates: start: 20180319, end: 20180530
  9. VALACYCLOVIR [Concomitant]
     Active Substance: VALACYCLOVIR HYDROCHLORIDE
     Route: 065
     Dates: start: 20180320, end: 20181207
  10. DIOSMECTITE [Concomitant]
     Active Substance: MONTMORILLONITE

REACTIONS (1)
  - Eosinophilic colitis [Recovered/Resolved with Sequelae]

NARRATIVE: CASE EVENT DATE: 20181203
